FAERS Safety Report 7068486-4 (Version None)
Quarter: 2010Q4

REPORT INFORMATION
  Report Type: 
  Country: None (occurrence: None)
  Receive Date: 20101028
  Receipt Date: 20101021
  Transmission Date: 20110411
  Serious: Yes (Hospitalization, Other)
  Sender: FDA-Public Use
  Company Number: CA-ABBOTT-10P-028-0680377-00

PATIENT
  Sex: Male
  Weight: 68.1 kg

DRUGS (3)
  1. HUMIRA [Suspect]
     Indication: CROHN'S DISEASE
     Route: 058
     Dates: start: 20090308
  2. MULTI-VITAMIN [Concomitant]
     Indication: VITAMIN SUPPLEMENTATION
     Route: 048
  3. HERBAL THINGS [Concomitant]
     Indication: PHYTOTHERAPY
     Route: 048

REACTIONS (3)
  - HAEMATOCHEZIA [None]
  - POST PROCEDURAL HAEMORRHAGE [None]
  - ULCER HAEMORRHAGE [None]
